FAERS Safety Report 21755966 (Version 1)
Quarter: 2022Q4

REPORT INFORMATION
  Report Type: Report from Study
  Country: MX (occurrence: MX)
  Receive Date: 20221220
  Receipt Date: 20221220
  Transmission Date: 20230113
  Serious: Yes (Other)
  Sender: FDA-Public Use
  Company Number: MX-002147023-NVSC2022MX167328

PATIENT
  Sex: Female
  Weight: 73 kg

DRUGS (6)
  1. KISQALI [Suspect]
     Active Substance: RIBOCICLIB
     Indication: Breast cancer
     Dosage: 600 MG, QD (3 X 200 MG AT 10 AM)
     Route: 048
     Dates: start: 202204
  2. KISQALI [Suspect]
     Active Substance: RIBOCICLIB
     Dosage: 600 MG
     Route: 048
  3. KISQALI [Suspect]
     Active Substance: RIBOCICLIB
     Dosage: UNK
     Route: 048
  4. LEVOTHYROXINE SODIUM [Concomitant]
     Active Substance: LEVOTHYROXINE SODIUM
     Indication: Product used for unknown indication
     Dosage: UNK
     Route: 065
  5. ENSURE [Concomitant]
     Active Substance: AMINO ACIDS\DEXTROSE\ELECTROLYTES NOS\SOYBEAN OIL\VITAMINS
     Indication: Product used for unknown indication
     Dosage: 3 DOSAGE FORM, QD (AT 10 AM OF 200 MG EACH, 600 MG TOTAL)
     Route: 065
     Dates: start: 20220718
  6. CALCIUM [Concomitant]
     Active Substance: CALCIUM
     Indication: Osteoporosis prophylaxis
     Dosage: UNK
     Route: 065

REACTIONS (31)
  - Hypothyroidism [Unknown]
  - Myalgia [Unknown]
  - Thyroid pain [Unknown]
  - Arthralgia [Unknown]
  - Weight increased [Not Recovered/Not Resolved]
  - Musculoskeletal discomfort [Unknown]
  - Eating disorder [Unknown]
  - Oropharyngeal discomfort [Not Recovered/Not Resolved]
  - Inflammation [Not Recovered/Not Resolved]
  - Throat irritation [Not Recovered/Not Resolved]
  - Dysphagia [Not Recovered/Not Resolved]
  - Abdominal discomfort [Unknown]
  - Pain [Not Recovered/Not Resolved]
  - Tumour pain [Recovering/Resolving]
  - Somnolence [Not Recovered/Not Resolved]
  - Skin burning sensation [Unknown]
  - Hyperkeratosis [Unknown]
  - Blister [Unknown]
  - Musculoskeletal stiffness [Unknown]
  - Weight decreased [Unknown]
  - Skin disorder [Unknown]
  - Pain in extremity [Unknown]
  - Asthenia [Unknown]
  - Diarrhoea [Unknown]
  - Lip dry [Not Recovered/Not Resolved]
  - Dyspepsia [Not Recovered/Not Resolved]
  - Dry skin [Unknown]
  - Erythema [Unknown]
  - Fatigue [Unknown]
  - Drug intolerance [Unknown]
  - Hypotonia [Unknown]
